FAERS Safety Report 24307864 (Version 1)
Quarter: 2024Q3

REPORT INFORMATION
  Report Type: Spontaneous
  Country: GB (occurrence: GB)
  Receive Date: 20240911
  Receipt Date: 20240911
  Transmission Date: 20241017
  Serious: Yes (Other)
  Sender: Harrow Health
  Company Number: GB-IMP-2024000708

PATIENT

DRUGS (1)
  1. MAXIDEX [Suspect]
     Active Substance: DEXAMETHASONE
     Indication: Eye inflammation
     Route: 065

REACTIONS (5)
  - Cystoid macular oedema [Unknown]
  - Disease recurrence [Unknown]
  - Gastrointestinal disorder [Unknown]
  - Headache [Unknown]
  - Incorrect product administration duration [Unknown]
